FAERS Safety Report 10778104 (Version 2)
Quarter: 2015Q1

REPORT INFORMATION
  Report Type: Spontaneous
  Country: DE (occurrence: PT)
  Receive Date: 20150209
  Receipt Date: 20150213
  Transmission Date: 20150721
  Serious: Yes (Death, Other)
  Sender: FDA-Public Use
  Company Number: DE-ACTELION-A-US2015-112620

PATIENT
  Sex: Male

DRUGS (3)
  1. VENTAVIS [Suspect]
     Active Substance: ILOPROST
     Indication: PULMONARY ARTERIAL HYPERTENSION
     Dosage: 5 MCG, 6XDAILY
     Route: 055
     Dates: start: 20141212
  2. SILDENAFIL. [Suspect]
     Active Substance: SILDENAFIL
     Indication: PULMONARY ARTERIAL HYPERTENSION
     Route: 065
  3. TRACLEER [Suspect]
     Active Substance: BOSENTAN\BOSENTAN MONOHYDRATE
     Indication: PULMONARY ARTERIAL HYPERTENSION
     Route: 048

REACTIONS (5)
  - Accident [Unknown]
  - Confusional state [Fatal]
  - Labelled drug-drug interaction medication error [Unknown]
  - Cerebral haematoma [Fatal]
  - Hemiparesis [Fatal]

NARRATIVE: CASE EVENT DATE: 20141219
